FAERS Safety Report 6519393-4 (Version None)
Quarter: 2009Q4

REPORT INFORMATION
  Report Type: 
  Country: None (occurrence: None)
  Receive Date: 20091228
  Receipt Date: 20091215
  Transmission Date: 20100525
  Serious: Yes (Disabling)
  Sender: FDA-Public Use
  Company Number: US-MERCK-0912USA01360

PATIENT
  Age: 49 Year
  Sex: Male

DRUGS (2)
  1. JANUVIA [Suspect]
     Route: 048
     Dates: start: 20091116, end: 20091118
  2. TYLENOL (CAPLET) [Concomitant]
     Route: 065

REACTIONS (3)
  - BLOOD GLUCOSE ABNORMAL [None]
  - HEADACHE [None]
  - URTICARIA [None]
